FAERS Safety Report 10561669 (Version 2)
Quarter: 2014Q4

REPORT INFORMATION
  Report Type: Report from Study
  Country: TW (occurrence: TW)
  Receive Date: 20141103
  Receipt Date: 20141103
  Transmission Date: 20150529
  Serious: Yes (Death, Life-Threatening, Hospitalization, Other)
  Sender: FDA-Public Use
  Company Number: TW-B.I. PHARMACEUTICALS,INC./RIDGEFIELD-2013-BI-41253BI

PATIENT
  Age: 62 Year
  Sex: Male

DRUGS (42)
  1. KCL [Concomitant]
     Active Substance: POTASSIUM CHLORIDE
     Indication: HYPOKALAEMIA
     Dosage: 15 ML
     Route: 042
     Dates: start: 20131212, end: 20131215
  2. ANXICAM [Concomitant]
     Dosage: 2 MG
     Route: 042
     Dates: start: 20140109, end: 20140109
  3. LACTULOSE. [Concomitant]
     Active Substance: LACTULOSE
     Indication: CONSTIPATION PROPHYLAXIS
     Dosage: 40 ML
     Route: 048
     Dates: start: 20140120, end: 20140120
  4. BUSCOPAN [Concomitant]
     Active Substance: BUTYLSCOPOLAMINE BROMIDE
     Indication: DIARRHOEA
     Dosage: 20 MG
     Route: 042
     Dates: start: 20131214, end: 20131214
  5. ACTRAPID [Concomitant]
     Active Substance: INSULIN HUMAN
     Dosage: 8 U
     Route: 042
     Dates: start: 20131213, end: 20131213
  6. SUPER TIDINE [Concomitant]
     Indication: PROPHYLAXIS
     Dosage: 40 MG
     Route: 048
     Dates: start: 20140110, end: 20140123
  7. DORMICUM [Concomitant]
     Active Substance: MIDAZOLAM\MIDAZOLAM HYDROCHLORIDE
     Indication: IRRITABILITY
     Dosage: 5 MG
     Route: 042
     Dates: start: 20131215, end: 20140115
  8. ACTRAPID [Concomitant]
     Active Substance: INSULIN HUMAN
     Dosage: 10 U
     Route: 042
     Dates: start: 20140120, end: 20140120
  9. FUROSEMIDE. [Concomitant]
     Active Substance: FUROSEMIDE
     Indication: ILL-DEFINED DISORDER
     Dosage: 60 MG
     Route: 042
     Dates: start: 20131210, end: 20131210
  10. FUROSEMIDE. [Concomitant]
     Active Substance: FUROSEMIDE
     Dosage: 40 MG
     Route: 042
     Dates: start: 20140127, end: 20140127
  11. ACARBOSE. [Concomitant]
     Active Substance: ACARBOSE
     Indication: DIABETES MELLITUS
     Dosage: 150 MG
     Route: 050
     Dates: start: 20131213, end: 20131213
  12. HUMULIN N7/R3 [Concomitant]
     Dosage: 20 U
     Route: 058
     Dates: start: 20131213, end: 20140101
  13. ANXICAM [Concomitant]
     Indication: IRRITABILITY
     Dosage: 2 MG
     Route: 042
     Dates: start: 20140101, end: 20140102
  14. XANAX [Concomitant]
     Active Substance: ALPRAZOLAM
     Indication: IRRITABILITY
     Dosage: 1.5 MG
     Route: 050
     Dates: start: 20131214, end: 20131214
  15. XANAX [Concomitant]
     Active Substance: ALPRAZOLAM
     Indication: PROPHYLAXIS
     Dosage: 0.5 MG
     Route: 050
     Dates: start: 20131215, end: 20131215
  16. ACTRAPID [Concomitant]
     Active Substance: INSULIN HUMAN
     Indication: HYPERNATRAEMIA
     Dosage: 6 U
     Route: 042
     Dates: start: 20131211, end: 20131211
  17. ACTRAPID [Concomitant]
     Active Substance: INSULIN HUMAN
     Dosage: 6 U
     Route: 042
     Dates: start: 20131213, end: 20131213
  18. HUMULIN N7/R3 [Concomitant]
     Indication: DIABETES MELLITUS
     Dosage: 10 U
     Route: 058
     Dates: start: 20131213, end: 20131227
  19. HUMULIN N7/R3 [Concomitant]
     Dosage: 8 U
     Route: 058
     Dates: start: 20140122, end: 20140123
  20. BIBW 2992 [Suspect]
     Active Substance: AFATINIB
     Indication: SQUAMOUS CELL CARCINOMA OF HEAD AND NECK
     Dosage: 40 MG
     Route: 048
     Dates: start: 20131112, end: 20131204
  21. AMIZIDE [Concomitant]
     Indication: HYPERTENSION
     Dosage: 1 ANZ
     Route: 050
     Dates: start: 20131214, end: 20131214
  22. GLUCOSE WATER [Concomitant]
     Indication: HYPERNATRAEMIA
     Dosage: 500 ML
     Route: 042
     Dates: start: 20131212, end: 20131212
  23. TRAZODONE [Concomitant]
     Active Substance: TRAZODONE HYDROCHLORIDE
     Indication: PROPHYLAXIS
     Dosage: 50 MG
     Route: 048
     Dates: start: 20140124, end: 20140206
  24. ACTRAPID [Concomitant]
     Active Substance: INSULIN HUMAN
     Indication: DIABETES MELLITUS
     Dosage: 100 U
     Route: 042
     Dates: start: 20131208, end: 20131209
  25. ACTRAPID [Concomitant]
     Active Substance: INSULIN HUMAN
     Dosage: 6 U
     Route: 042
     Dates: start: 20131212, end: 20131212
  26. ACTRAPID [Concomitant]
     Active Substance: INSULIN HUMAN
     Dosage: 6 U
     Route: 042
     Dates: start: 20131212, end: 20131213
  27. ESOMEPRAZOLE [Concomitant]
     Active Substance: ESOMEPRAZOLE
     Indication: PROPHYLAXIS
     Dosage: 40 MG
     Route: 050
     Dates: start: 20131211, end: 20131218
  28. KCL [Concomitant]
     Active Substance: POTASSIUM CHLORIDE
     Dosage: 10 ML
     Route: 042
     Dates: start: 20131216, end: 20131223
  29. SUCRALFATE. [Concomitant]
     Active Substance: SUCRALFATE
     Indication: PROPHYLAXIS
     Dosage: 4000 MG
     Route: 048
     Dates: start: 20140123, end: 20140206
  30. FAMOTIDINE. [Concomitant]
     Active Substance: FAMOTIDINE
     Indication: PROPHYLAXIS
     Dosage: 40 MG
     Route: 050
     Dates: start: 20131218, end: 20131231
  31. PECOLIN SUSP [Concomitant]
     Indication: DIARRHOEA
     Dosage: 40 ML
     Route: 050
     Dates: start: 20131214, end: 20131215
  32. ACTRAPID [Concomitant]
     Active Substance: INSULIN HUMAN
     Dosage: 6 U
     Route: 042
     Dates: start: 20131214, end: 20131214
  33. FUROSEMIDE. [Concomitant]
     Active Substance: FUROSEMIDE
     Indication: PROPHYLAXIS
     Dosage: 20 MG
     Route: 042
     Dates: start: 20131210, end: 20131212
  34. CHLORPHENIRAMINE [Concomitant]
     Active Substance: CHLORPHENIRAMINE
     Indication: TRANSFUSION
     Dosage: 5 MG
     Route: 042
     Dates: start: 20140123, end: 20140123
  35. XANAX [Concomitant]
     Active Substance: ALPRAZOLAM
     Dosage: 0.75 MG
     Route: 050
     Dates: start: 20131217, end: 20131218
  36. ACTRAPID [Concomitant]
     Active Substance: INSULIN HUMAN
     Dosage: 10 U
     Route: 042
     Dates: start: 20131213, end: 20131213
  37. ACTRAPID [Concomitant]
     Active Substance: INSULIN HUMAN
     Dosage: 8 U
     Route: 042
     Dates: start: 20131213, end: 20131213
  38. PRIMPERAN [Concomitant]
     Active Substance: METOCLOPRAMIDE HYDROCHLORIDE
     Indication: DIARRHOEA
     Dosage: 20 MG
     Route: 042
     Dates: start: 20131209, end: 20131210
  39. FUROSEMIDE. [Concomitant]
     Active Substance: FUROSEMIDE
     Dosage: 60 MG
     Route: 042
     Dates: start: 20131212, end: 20131212
  40. HUMULIN N7/R3 [Concomitant]
     Dosage: 4 U
     Route: 058
     Dates: start: 20140120, end: 20140122
  41. HUMULIN N7/R3 [Concomitant]
     Dosage: 12 U
     Route: 058
     Dates: start: 20140120, end: 20140122
  42. HUMULIN N7/R3 [Concomitant]
     Dosage: 4 U
     Route: 058
     Dates: start: 20140122, end: 20140123

REACTIONS (6)
  - Malignant neoplasm progression [Fatal]
  - Sepsis [Recovered/Resolved]
  - Hyperkalaemia [Recovered/Resolved]
  - Pneumonia [Recovered/Resolved]
  - Respiratory failure [Not Recovered/Not Resolved]
  - Stomatitis [Not Recovered/Not Resolved]

NARRATIVE: CASE EVENT DATE: 20131205
